FAERS Safety Report 14955479 (Version 1)
Quarter: 2018Q2

REPORT INFORMATION
  Report Type: Report from Study
  Country: US (occurrence: US)
  Receive Date: 20180531
  Receipt Date: 20180531
  Transmission Date: 20180711
  Serious: Yes (Other)
  Sender: FDA-Public Use
  Company Number: US-ROCHE-2132204

PATIENT
  Age: 7 Year
  Sex: Female

DRUGS (1)
  1. BEVACIZUMAB. [Suspect]
     Active Substance: BEVACIZUMAB
     Indication: GLIOMA
     Route: 042

REACTIONS (3)
  - Bone pain [Recovered/Resolved]
  - Tendonitis [Recovered/Resolved]
  - Headache [Recovered/Resolved]
